FAERS Safety Report 4490366-9 (Version None)
Quarter: 2004Q3

REPORT INFORMATION
  Report Type: 
  Country: None (occurrence: None)
  Receive Date: 20040921
  Receipt Date: 20040105
  Transmission Date: 20050211
  Serious: Yes (Hospitalization, Other)
  Sender: FDA-Public Use
  Company Number: 163-20785-04010050

PATIENT
  Age: 56 Year
  Sex: Male

DRUGS (7)
  1. THALOMID [Suspect]
     Indication: MULTIPLE MYELOMA
     Dosage: 200 MG, ONCE, ORAL
     Route: 048
     Dates: start: 20030417
  2. MELPHALAN [Suspect]
     Indication: MULTIPLE MYELOMA
     Dosage: 400 MG, ONCE, INTRAVENOUS
     Route: 042
     Dates: start: 20030601
  3. DEXAMETHASONE [Concomitant]
  4. CISPLATIN [Concomitant]
  5. ADRIAMYCIN PFS [Concomitant]
  6. CYTOXAN [Concomitant]
  7. ETOPOSIDE [Concomitant]

REACTIONS (13)
  - C-REACTIVE PROTEIN INCREASED [None]
  - CHILLS [None]
  - DIARRHOEA [None]
  - GRANULOCYTE COUNT DECREASED [None]
  - MUCOSAL INFLAMMATION [None]
  - NAUSEA [None]
  - NEUTROPENIA [None]
  - PLATELET COUNT DECREASED [None]
  - PYREXIA [None]
  - STAPHYLOCOCCAL BACTERAEMIA [None]
  - STAPHYLOCOCCAL INFECTION [None]
  - VOMITING [None]
  - WHITE BLOOD CELL COUNT DECREASED [None]
